FAERS Safety Report 6836799-4 (Version None)
Quarter: 2010Q3

REPORT INFORMATION
  Report Type: 
  Country: None (occurrence: None)
  Receive Date: 20100713
  Receipt Date: 20100629
  Transmission Date: 20110219
  Serious: Yes (Death)
  Sender: FDA-Public Use
  Company Number: GB-GENENTECH-302511

PATIENT

DRUGS (10)
  1. LUCENTIS [Suspect]
     Indication: MACULAR DEGENERATION
     Dosage: UNK
     Route: 031
     Dates: start: 20081222, end: 20090330
  2. NULYTELY [Concomitant]
     Indication: PRODUCT USED FOR UNKNOWN INDICATION
  3. CARBOMER NOS [Concomitant]
     Indication: PRODUCT USED FOR UNKNOWN INDICATION
  4. BUPRENORPHINE [Concomitant]
     Indication: PRODUCT USED FOR UNKNOWN INDICATION
  5. OLANZAPINE [Concomitant]
     Indication: PRODUCT USED FOR UNKNOWN INDICATION
  6. FUROSEMIDE [Concomitant]
     Indication: PRODUCT USED FOR UNKNOWN INDICATION
  7. MAXOLON [Concomitant]
     Indication: PRODUCT USED FOR UNKNOWN INDICATION
  8. OMEPRAZOLE [Concomitant]
     Indication: PRODUCT USED FOR UNKNOWN INDICATION
  9. ACETAMINOPHEN AND CODEINE PHOSPHATE [Concomitant]
     Indication: PRODUCT USED FOR UNKNOWN INDICATION
  10. ENSURE [Concomitant]
     Indication: PRODUCT USED FOR UNKNOWN INDICATION

REACTIONS (6)
  - BLOOD CREATININE DECREASED [None]
  - BLOOD UREA INCREASED [None]
  - DRUG INEFFECTIVE [None]
  - HAEMATOCRIT DECREASED [None]
  - PANCREATIC CARCINOMA [None]
  - RETINAL SCAR [None]
